FAERS Safety Report 10070688 (Version 3)
Quarter: 2014Q2

REPORT INFORMATION
  Report Type: Spontaneous
  Country: US (occurrence: US)
  Receive Date: 20140410
  Receipt Date: 20140508
  Transmission Date: 20141212
  Serious: Yes (Death, Hospitalization)
  Sender: FDA-Public Use
  Company Number: US-BAXTER-2014BAX017869

PATIENT
  Age: 58 Year
  Sex: Male

DRUGS (1)
  1. DIANEAL LOW CALCIUM [Suspect]
     Indication: PERITONEAL DIALYSIS
     Route: 033
     Dates: end: 20140420

REACTIONS (4)
  - Therapy cessation [Fatal]
  - Fungal peritonitis [Not Recovered/Not Resolved]
  - Peritonitis bacterial [Not Recovered/Not Resolved]
  - Peritoneal dialysis complication [Unknown]
